FAERS Safety Report 4520030-9 (Version None)
Quarter: 2004Q4

REPORT INFORMATION
  Report Type: 
  Country: None (occurrence: None)
  Receive Date: 20041028
  Receipt Date: 20040714
  Transmission Date: 20050328
  Serious: Yes (Hospitalization, Other)
  Sender: FDA-Public Use
  Company Number: US083410

PATIENT
  Age: 23 Year
  Sex: Female

DRUGS (20)
  1. SENSIPAR [Suspect]
     Indication: HYPERPARATHYROIDISM SECONDARY
     Dosage: 30 MG, 1 IN 1 DAYS, PO
     Route: 048
     Dates: start: 20040525, end: 20040708
  2. PHENYTOIN SODIUM [Concomitant]
  3. INSULIN [Concomitant]
  4. INSULIN GLARGINE [Concomitant]
  5. ROSIGLITAZONE MALEATE [Concomitant]
  6. GLIMEPIRIDE [Concomitant]
  7. LOSARTAN POTASSIUM [Concomitant]
  8. LABETALOL [Concomitant]
  9. ... [Concomitant]
  10. HYDRALAZINE HCL [Concomitant]
  11. CLONIDINE [Concomitant]
  12. LEVOXYL [Concomitant]
  13. PANTOPRAZOLE SODIUM [Concomitant]
  14. PANCRELIPASE [Concomitant]
  15. SEVELAMER HCL [Concomitant]
  16. CALCIUM [Concomitant]
  17. NEPHRO-VITE [Concomitant]
  18. GABAPENTIN [Concomitant]
  19. ALPRAZOLAM [Concomitant]
  20. EPOGEN [Concomitant]

REACTIONS (10)
  - ARTHRALGIA [None]
  - BLOOD PRESSURE INCREASED [None]
  - COMPLEX PARTIAL SEIZURES [None]
  - HERPES SIMPLEX [None]
  - HYPERPHOSPHATAEMIA [None]
  - HYPOCALCAEMIA [None]
  - MUSCLE SPASMS [None]
  - NAUSEA [None]
  - PNEUMONIA [None]
  - VOMITING [None]
